FAERS Safety Report 14039169 (Version 1)
Quarter: 2017Q4

REPORT INFORMATION
  Report Type: Spontaneous
  Country: US (occurrence: US)
  Receive Date: 20171004
  Receipt Date: 20171004
  Transmission Date: 20180321
  Serious: Yes (Life-Threatening, Hospitalization)
  Sender: FDA-Public Use
  Company Number: None

PATIENT
  Age: 56 Year
  Sex: Male
  Weight: 60.7 kg

DRUGS (1)
  1. VEMLIDY [Suspect]
     Active Substance: TENOFOVIR ALAFENAMIDE FUMARATE
     Indication: HEPATITIS B

REACTIONS (6)
  - Hepatorenal syndrome [None]
  - Liver transplant [None]
  - Jaundice [None]
  - Acute kidney injury [None]
  - Drug-induced liver injury [None]
  - Hepatic cirrhosis [None]

NARRATIVE: CASE EVENT DATE: 20170824
